FAERS Safety Report 5911512-3 (Version None)
Quarter: 2008Q4

REPORT INFORMATION
  Report Type: 
  Country: None (occurrence: None)
  Receive Date: 20081007
  Receipt Date: 20080922
  Transmission Date: 20090506
  Serious: Yes (Other)
  Sender: FDA-Public Use
  Company Number: IT-GENENTECH-269044

PATIENT
  Age: 45 Year
  Sex: Female

DRUGS (2)
  1. MABTHERA [Suspect]
     Indication: BASEDOW'S DISEASE
     Dosage: UNK
     Route: 065
     Dates: start: 20040414
  2. METHIMAZOLE [Concomitant]
     Indication: DRUG USE FOR UNKNOWN INDICATION
     Dosage: UNK
     Dates: start: 20021201

REACTIONS (1)
  - HYPERTHYROIDISM [None]
